FAERS Safety Report 4586648-2 (Version None)
Quarter: 2005Q1

REPORT INFORMATION
  Report Type: 
  Country: None (occurrence: None)
  Receive Date: 20050218
  Receipt Date: 20040922
  Transmission Date: 20050727
  Serious: No
  Sender: FDA-Public Use
  Company Number: US-BRISTOL-MYERS SQUIBB COMPANY-12709192

PATIENT
  Age: 44 Year
  Sex: Female
  Weight: 71 kg

DRUGS (7)
  1. TAXOL [Suspect]
     Indication: BREAST CANCER METASTATIC
     Dosage: 175 MG/CM2
     Route: 042
     Dates: start: 20040812, end: 20040812
  2. GEMZAR [Suspect]
     Indication: BREAST CANCER METASTATIC
     Dosage: 1250 MG/CM2.  ADMINISTERED DAY 1 AND 8.
     Route: 042
     Dates: start: 20040812, end: 20040812
  3. ZOMETA [Concomitant]
     Route: 042
     Dates: start: 20040819
  4. BENADRYL [Concomitant]
     Indication: PREMEDICATION
     Route: 042
     Dates: start: 20040812, end: 20040812
  5. DECADRON [Concomitant]
     Indication: PREMEDICATION
     Route: 042
     Dates: start: 20040812, end: 20040812
  6. TAGAMET [Concomitant]
     Indication: PREMEDICATION
     Route: 042
     Dates: start: 20040812, end: 20040812
  7. HEPARIN [Concomitant]
     Dosage: UNITS.
     Dates: start: 20040812, end: 20040812

REACTIONS (4)
  - ARTHRALGIA [None]
  - LEUKOPENIA [None]
  - NEUROPATHY PERIPHERAL [None]
  - SKIN DISCOLOURATION [None]
